FAERS Safety Report 6610807-8 (Version None)
Quarter: 2010Q1

REPORT INFORMATION
  Report Type: 
  Country: None (occurrence: None)
  Receive Date: 20100302
  Receipt Date: 20100218
  Transmission Date: 20100710
  Serious: Yes (Other)
  Sender: FDA-Public Use
  Company Number: CH-PFIZER INC-2010021757

PATIENT
  Sex: Female

DRUGS (1)
  1. XANAX [Suspect]
     Indication: AGORAPHOBIA
     Dosage: UNK

REACTIONS (1)
  - DRUG DEPENDENCE [None]
